FAERS Safety Report 5175280-8 (Version None)
Quarter: 2006Q4

REPORT INFORMATION
  Report Type: 
  Country: None (occurrence: None)
  Receive Date: 20061211
  Receipt Date: 20061211
  Transmission Date: 20070319
  Serious: Yes (Hospitalization)
  Sender: FDA-Public Use
  Company Number: None

PATIENT
  Sex: Female
  Weight: 75.77 kg

DRUGS (9)
  1. CYCLOPHOSPHAMIDE [Suspect]
     Dosage: 1080 MG
  2. DOXORUBICIN HYDROCHLORIDE [Suspect]
     Dosage: 108 MG
  3. ALBUTEROL [Concomitant]
  4. COZAAR [Concomitant]
  5. FLONASE [Concomitant]
  6. LEVOXYL [Concomitant]
  7. NASONEX [Concomitant]
  8. OXYTROL [Concomitant]
  9. XANAX [Concomitant]

REACTIONS (11)
  - BACK PAIN [None]
  - BACTERIA URINE IDENTIFIED [None]
  - BLOOD URINE PRESENT [None]
  - DYSURIA [None]
  - EAR PAIN [None]
  - FEBRILE NEUTROPENIA [None]
  - HEADACHE [None]
  - HYPERHIDROSIS [None]
  - POLLAKIURIA [None]
  - PROTEIN URINE PRESENT [None]
  - TONGUE DISORDER [None]
